FAERS Safety Report 15124136 (Version 5)
Quarter: 2018Q4

REPORT INFORMATION
  Report Type: Spontaneous
  Country: CA (occurrence: CA)
  Receive Date: 20180710
  Receipt Date: 20181016
  Transmission Date: 20190204
  Serious: Yes (Other)
  Sender: FDA-Public Use
  Company Number: CA-CELLTRION INC.-2018CA019177

PATIENT

DRUGS (10)
  1. INFLECTRA [Suspect]
     Active Substance: INFLIXIMAB-DYYB
     Dosage: 5 MG/KG,CYCLIC (EVERY 0,2,6 WEEKS,THAN EVERY 8 WEEKS)
     Route: 042
     Dates: start: 20180430
  2. PREDNISONE. [Concomitant]
     Active Substance: PREDNISONE
     Dosage: UNK
  3. CALCIUM [Concomitant]
     Active Substance: CALCIUM
     Dosage: UNK
  4. INFLECTRA [Suspect]
     Active Substance: INFLIXIMAB-DYYB
     Indication: CROHN^S DISEASE
     Dosage: 5 MG/KG,CYCLIC (EVERY 0,2,6 WEEKS,THAN EVERY 8 WEEKS)
     Route: 042
     Dates: start: 20180320
  5. INFLECTRA [Suspect]
     Active Substance: INFLIXIMAB-DYYB
     Dosage: 5 MG/KG,CYCLIC (EVERY 0,2,6 WEEKS,THAN EVERY 8 WEEKS)
     Route: 042
     Dates: start: 20180402
  6. INFLECTRA [Suspect]
     Active Substance: INFLIXIMAB-DYYB
     Dosage: 5 MG/KG,CYCLIC (EVERY 0,2,6 WEEKS,THAN EVERY 8 WEEKS)
     Route: 042
     Dates: start: 20180626
  7. INFLECTRA [Suspect]
     Active Substance: INFLIXIMAB-DYYB
     Dosage: 5 MG/KG,CYCLIC (EVERY 0,2,6 WEEKS,THAN EVERY 8 WEEKS)
     Route: 042
     Dates: start: 20180626
  8. INFLECTRA [Suspect]
     Active Substance: INFLIXIMAB-DYYB
     Dosage: 5 MG/KG,CYCLIC (EVERY 0,2,6 WEEKS,THAN EVERY 8 WEEKS)
     Route: 042
     Dates: start: 20180821
  9. INFLECTRA [Suspect]
     Active Substance: INFLIXIMAB-DYYB
     Dosage: 5 MG/KG,CYCLIC (EVERY 0,2,6 WEEKS,THAN EVERY 8 WEEKS)
     Route: 042
     Dates: start: 20181001
  10. IRON [Concomitant]
     Active Substance: IRON
     Dosage: UNK

REACTIONS (9)
  - Acne [Recovering/Resolving]
  - Headache [Recovered/Resolved]
  - Haematochezia [Not Recovered/Not Resolved]
  - Weight increased [Unknown]
  - Product use issue [Unknown]
  - Off label use [Unknown]
  - Product use issue [Unknown]
  - Condition aggravated [Unknown]
  - Fatigue [Recovering/Resolving]

NARRATIVE: CASE EVENT DATE: 20180320
